FAERS Safety Report 8159154-6 (Version None)
Quarter: 2012Q1

REPORT INFORMATION
  Report Type: 
  Country: None (occurrence: None)
  Receive Date: 20120223
  Receipt Date: 20120215
  Transmission Date: 20120608
  Serious: Yes (Hospitalization)
  Sender: FDA-Public Use
  Company Number: US-AMGEN-USASP2012010228

PATIENT
  Age: 65 Year
  Sex: Male

DRUGS (1)
  1. ENBREL [Suspect]
     Indication: PSORIASIS
     Dosage: 50 MG, 2 TIMES/WK
     Dates: start: 20020126, end: 20120210

REACTIONS (11)
  - FAECAL INCONTINENCE [None]
  - PROSTATOMEGALY [None]
  - PSORIASIS [None]
  - FATIGUE [None]
  - HYPERSOMNIA [None]
  - LUMBAR SPINAL STENOSIS [None]
  - VASCULAR PSEUDOANEURYSM [None]
  - INTERVERTEBRAL DISC PROTRUSION [None]
  - CORONARY ARTERIAL STENT INSERTION [None]
  - URINARY INCONTINENCE [None]
  - STAPHYLOCOCCAL INFECTION [None]
